FAERS Safety Report 8523180-5 (Version None)
Quarter: 2012Q3

REPORT INFORMATION
  Report Type: 
  Country: None (occurrence: None)
  Receive Date: 20120713
  Receipt Date: 20120713
  Transmission Date: 20120928
  Serious: Yes (Hospitalization, Other)
  Sender: FDA-Public Use
  Company Number: None

PATIENT
  Sex: Female

DRUGS (5)
  1. ZYRTEC [Concomitant]
  2. TEGRETOL [Concomitant]
  3. RECLAST [Suspect]
     Indication: OSTEOPOROSIS
     Dosage: 5MG ONCE A YEAR IV ONCE
     Route: 042
  4. LYRICA [Concomitant]
  5. FLONASE [Concomitant]

REACTIONS (5)
  - PYREXIA [None]
  - EYE INFLAMMATION [None]
  - CONVULSION [None]
  - DIPLOPIA [None]
  - INFLUENZA LIKE ILLNESS [None]
